FAERS Safety Report 25043418 (Version 6)
Quarter: 2025Q2

REPORT INFORMATION
  Report Type: Report from Study
  Country: US (occurrence: US)
  Receive Date: 20250306
  Receipt Date: 20250626
  Transmission Date: 20250716
  Serious: Yes (Other)
  Sender: SUNOVION
  Company Number: US-SUMITOMO PHARMA SWITZERLAND GMBH-2025SPA002242

PATIENT

DRUGS (2)
  1. ORGOVYX [Suspect]
     Active Substance: RELUGOLIX
     Indication: Prostate cancer
     Dosage: 360 MG, SINGLE
     Route: 048
     Dates: start: 20250203, end: 20250203
  2. ORGOVYX [Suspect]
     Active Substance: RELUGOLIX
     Dosage: 120 MG, QD
     Route: 048
     Dates: start: 20250204

REACTIONS (7)
  - Diverticulitis [Unknown]
  - Sinusitis [Recovering/Resolving]
  - Ear infection [Unknown]
  - White blood cell count increased [Unknown]
  - Mean platelet volume increased [Unknown]
  - Influenza [Unknown]
  - Hyperhidrosis [Unknown]
